FAERS Safety Report 19920551 (Version 1)
Quarter: 2021Q4

REPORT INFORMATION
  Report Type: Spontaneous
  Country: NL (occurrence: DE)
  Receive Date: 20211005
  Receipt Date: 20211005
  Transmission Date: 20220303
  Serious: Yes (Death, Hospitalization)
  Sender: FDA-Public Use
  Company Number: DE-CELGENE-DEU-20210902976

PATIENT
  Age: 69 Year
  Sex: Male

DRUGS (20)
  1. CARBOPLATIN [Suspect]
     Active Substance: CARBOPLATIN
     Indication: Product used for unknown indication
     Dosage: 97 MG/MIN/ML
     Route: 042
     Dates: end: 20200116
  2. CARBOPLATIN [Suspect]
     Active Substance: CARBOPLATIN
     Indication: Non-small cell lung cancer
     Dosage: 595 MG/MIN/ML
     Route: 042
     Dates: start: 20191010, end: 20191017
  3. PACLITAXEL [Suspect]
     Active Substance: PACLITAXEL
     Indication: Product used for unknown indication
     Dosage: 194 MILLIGRAM/SQ. METER
     Route: 042
     Dates: end: 20200116
  4. PACLITAXEL [Suspect]
     Active Substance: PACLITAXEL
     Indication: Non-small cell lung cancer
     Dosage: 194 MILLIGRAM/SQ. METER
     Route: 042
     Dates: start: 20191010, end: 20191017
  5. ATEZOLIZUMAB [Suspect]
     Active Substance: ATEZOLIZUMAB
     Indication: Non-small cell lung cancer
     Dosage: 1200 MILLIGRAM
     Route: 042
     Dates: start: 20191010, end: 20200102
  6. GRANULOCYTE COLONY-STIMULATING FACTOR NOS [Concomitant]
     Active Substance: GRANULOCYTE COLONY-STIMULATING FACTOR NOS
     Indication: Product used for unknown indication
     Dosage: 30 IU (INTERNATIONAL UNIT)
     Route: 058
     Dates: start: 20191022, end: 20191024
  7. DEXAMETHASONE [Concomitant]
     Active Substance: DEXAMETHASONE
     Indication: Product used for unknown indication
     Dosage: 8 MILLIGRAM
     Route: 041
     Dates: start: 20191010
  8. ASPIRIN [Concomitant]
     Active Substance: ASPIRIN
     Indication: Iliac artery stenosis
     Dosage: 100 MILLIGRAM
     Route: 048
     Dates: start: 20190902
  9. PALONOSETRON. [Concomitant]
     Active Substance: PALONOSETRON HYDROCHLORIDE
     Indication: Product used for unknown indication
     Dosage: 5 MILLIGRAM
     Route: 042
     Dates: start: 20191010
  10. TORSEMIDE [Concomitant]
     Active Substance: TORSEMIDE
     Indication: Emphysema
     Dosage: 10 MILLIGRAM
     Route: 048
     Dates: start: 20190902
  11. NETUPITANT [Concomitant]
     Active Substance: NETUPITANT
     Indication: Product used for unknown indication
     Dosage: 300 MILLIGRAM
     Route: 042
     Dates: start: 20191010
  12. PEGFILGRASTIM [Concomitant]
     Active Substance: PEGFILGRASTIM
     Indication: Product used for unknown indication
     Dosage: 6 MILLIGRAM
     Route: 058
     Dates: start: 20191219, end: 20191219
  13. RAMIPRIL [Concomitant]
     Active Substance: RAMIPRIL
     Indication: Hypertension
     Dosage: 25 MILLIGRAM
     Route: 048
     Dates: start: 20190902
  14. GRANISETRON [Concomitant]
     Active Substance: GRANISETRON
     Indication: Product used for unknown indication
     Dosage: 1 MILLIGRAM
     Route: 042
     Dates: start: 20191010
  15. PIPERACILLIN. [Concomitant]
     Active Substance: PIPERACILLIN SODIUM
     Indication: Product used for unknown indication
     Route: 048
     Dates: start: 20191023, end: 20191028
  16. ATORVASTATIN [Concomitant]
     Active Substance: ATORVASTATIN
     Indication: Iliac artery stenosis
     Dosage: 20 MILLIGRAM
     Route: 048
     Dates: start: 20190902
  17. BISOPROLOL [Concomitant]
     Active Substance: BISOPROLOL
     Indication: Hypertension
     Dosage: 25 MILLIGRAM
     Route: 048
     Dates: start: 20190902
  18. PANTOPRAZOLE [Concomitant]
     Active Substance: PANTOPRAZOLE
     Indication: Product used for unknown indication
     Dosage: 80 MILLIGRAM
     Route: 048
     Dates: start: 20200130
  19. TAZOBACTAM [Concomitant]
     Active Substance: TAZOBACTAM
     Indication: Product used for unknown indication
     Route: 048
     Dates: start: 20191023, end: 20191028
  20. ALLOPURINOL [Concomitant]
     Active Substance: ALLOPURINOL
     Indication: Hyperuricaemia
     Dosage: 100 MILLIGRAM
     Route: 048
     Dates: start: 20190902

REACTIONS (15)
  - Asthenia [Recovered/Resolved]
  - Skin ulcer [Recovered/Resolved]
  - Subclavian artery occlusion [Recovered/Resolved]
  - Upper gastrointestinal haemorrhage [Recovered/Resolved]
  - Autoimmune colitis [Fatal]
  - Haematochezia [Recovered/Resolved]
  - Diarrhoea [Recovered/Resolved]
  - Decreased appetite [Recovered/Resolved]
  - Febrile infection [Recovered/Resolved]
  - Stomatitis [Recovered/Resolved]
  - Leukopenia [Not Recovered/Not Resolved]
  - Anaemia [Recovered/Resolved]
  - Diarrhoea [Recovered/Resolved]
  - Fatigue [Recovered/Resolved]
  - Pain in extremity [Recovered/Resolved]

NARRATIVE: CASE EVENT DATE: 20191020
